FAERS Safety Report 24087977 (Version 3)
Quarter: 2025Q1

REPORT INFORMATION
  Report Type: Spontaneous
  Country: US (occurrence: US)
  Receive Date: 20240715
  Receipt Date: 20250203
  Transmission Date: 20250409
  Serious: No
  Sender: SANOFI AVENTIS
  Company Number: US-SA-SAC20240712000118

PATIENT
  Age: 63 Year
  Sex: Female
  Weight: 61.68 kg

DRUGS (2)
  1. DUPIXENT [Suspect]
     Active Substance: DUPILUMAB
     Indication: Asthma
     Dosage: 300 MG, QOW
     Route: 058
     Dates: end: 202406
  2. AZELASTINE [Concomitant]
     Active Substance: AZELASTINE

REACTIONS (4)
  - Nasal congestion [Unknown]
  - Anosmia [Unknown]
  - Ageusia [Unknown]
  - Weight decreased [Unknown]

NARRATIVE: CASE EVENT DATE: 20240101
